FAERS Safety Report 9794311 (Version 3)
Quarter: 2014Q1

REPORT INFORMATION
  Report Type: Spontaneous
  Country: FR (occurrence: FR)
  Receive Date: 20140102
  Receipt Date: 20140122
  Transmission Date: 20141002
  Serious: Yes (Other)
  Sender: FDA-Public Use
  Company Number: FR-PFIZER INC-2013373762

PATIENT
  Age: 80 Year
  Sex: Female

DRUGS (14)
  1. EUPANTOL [Suspect]
     Indication: PROPHYLAXIS
     Dosage: UNK
     Route: 065
     Dates: start: 20131123, end: 20131127
  2. METRONIDAZOLE [Suspect]
     Indication: CLOSTRIDIUM COLITIS
     Dosage: UNK
     Route: 042
     Dates: start: 20131123, end: 20131127
  3. TARGOCID [Suspect]
     Indication: SEPTIC SHOCK
     Dosage: UNK
     Route: 042
     Dates: start: 20131124, end: 20131127
  4. AMIKACINE [Suspect]
     Indication: SEPTIC SHOCK
     Dosage: UNK
     Route: 042
     Dates: start: 20131123, end: 20131127
  5. CEFTRIAXONE SODIUM [Suspect]
     Indication: SEPTIC SHOCK
     Dosage: UNK
     Route: 042
     Dates: end: 20131127
  6. LASILIX [Concomitant]
     Dosage: UNK
  7. TARDYFERON [Concomitant]
     Dosage: UNK
  8. CERIS [Concomitant]
     Dosage: UNK
  9. DOLIPRANE [Concomitant]
     Dosage: UNK
  10. SIMVASTATINE [Concomitant]
     Dosage: UNK
  11. VOLTARENE [Concomitant]
     Dosage: UNK
  12. TAREG [Concomitant]
     Dosage: UNK
  13. GAVISCON [Concomitant]
     Dosage: UNK
  14. DOMPERIDONE [Concomitant]
     Dosage: UNK

REACTIONS (2)
  - Agranulocytosis [Recovered/Resolved]
  - Thrombocytopenia [Recovered/Resolved]
